FAERS Safety Report 18687854 (Version 1)
Quarter: 2020Q4

REPORT INFORMATION
  Report Type: Report from Study
  Country: US (occurrence: US)
  Receive Date: 20201231
  Receipt Date: 20201231
  Transmission Date: 20210114
  Serious: Yes (Death)
  Sender: FDA-Public Use
  Company Number: US-BAYER-2020-286425

PATIENT
  Sex: Male

DRUGS (16)
  1. LAMOTRIGINE. [Concomitant]
     Active Substance: LAMOTRIGINE
  2. ZONISAMIDE. [Concomitant]
     Active Substance: ZONISAMIDE
     Dosage: 100 MG
  3. CEPHALEXINE [Concomitant]
     Active Substance: CEPHALEXIN
  4. LANTUS [Concomitant]
     Active Substance: INSULIN GLARGINE
  5. METOPROLOL. [Concomitant]
     Active Substance: METOPROLOL
     Dosage: 50 MG
  6. BACLOFEN. [Concomitant]
     Active Substance: BACLOFEN
     Dosage: 20 MG
  7. LISINOPRIL + HIDROCLOROTIAZIDA [Concomitant]
     Active Substance: HYDROCHLOROTHIAZIDE\LISINOPRIL
  8. METHYLPHENI TAD [Concomitant]
     Dosage: 20 MG
  9. ZETIA [Concomitant]
     Active Substance: EZETIMIBE
     Dosage: 10 MG
  10. GABAPENTIN. [Concomitant]
     Active Substance: GABAPENTIN
     Dosage: 300 MG
  11. DOXYCLIN [DOXYCYCLINE HYDROCHLORIDE] [Concomitant]
     Dosage: 100 MG
  12. LOVASTATIN. [Concomitant]
     Active Substance: LOVASTATIN
     Dosage: 20 MG
  13. NAPROXEN. [Concomitant]
     Active Substance: NAPROXEN
     Dosage: 500 MG
  14. BETASERON [Suspect]
     Active Substance: INTERFERON BETA-1B
     Indication: MULTIPLE SCLEROSIS
     Dosage: 1.59 MG, TIW
     Dates: start: 20201220
  15. MEDI-MECLIZINE [Concomitant]
     Dosage: 25 MG
  16. METFORMIN [Concomitant]
     Active Substance: METFORMIN HYDROCHLORIDE
     Dosage: 500 MG

REACTIONS (1)
  - Death [Fatal]
